FAERS Safety Report 6156297-3 (Version None)
Quarter: 2009Q2

REPORT INFORMATION
  Report Type: 
  Country: None (occurrence: None)
  Receive Date: 20090415
  Receipt Date: 20090410
  Transmission Date: 20091009
  Serious: No
  Sender: FDA-Public Use
  Company Number: US-B.I. PHARMACEUTICALS,INC./RIDGEFIELD-2009-BP-04508BP

PATIENT
  Sex: Male

DRUGS (2)
  1. CATAPRES-TTS-1 [Suspect]
     Indication: HYPERTENSION
     Dosage: .1MG
     Route: 061
     Dates: start: 20081201, end: 20090201
  2. CATAPRES-TTS-1 [Suspect]
     Dosage: .2MG
     Route: 061
     Dates: start: 20090301

REACTIONS (3)
  - APPLICATION SITE ERYTHEMA [None]
  - APPLICATION SITE RASH [None]
  - BLOOD PRESSURE ABNORMAL [None]
